FAERS Safety Report 8780399 (Version 1)
Quarter: 2012Q4

REPORT INFORMATION
  Report Type: Spontaneous
  Country: US (occurrence: None)
  Receive Date: 20120828
  Receipt Date: 20120828
  Transmission Date: 20130627
  Serious: Yes (Other)
  Sender: FDA-Public Use
  Company Number: FK201202428

PATIENT
  Age: 6 Decade
  Sex: Male

DRUGS (4)
  1. OXALIPLATIN [Suspect]
  2. FLUOROURACIL [Suspect]
  3. IRINOTECAN [Suspect]
  4. GRANULOCYTE COLONY STIMULATING FACTOR (GRANULOCYTE COLONY STIMULATING FACTOR) [Concomitant]

REACTIONS (8)
  - Bone marrow failure [None]
  - Thrombocytopenia [None]
  - Post procedural haemorrhage [None]
  - Myelodysplastic syndrome [None]
  - Metastases to liver [None]
  - Malignant neoplasm progression [None]
  - Portal hypertension [None]
  - Intestinal varices [None]
